FAERS Safety Report 15103749 (Version 4)
Quarter: 2018Q3

REPORT INFORMATION
  Report Type: Spontaneous
  Country: AR (occurrence: AR)
  Receive Date: 20180703
  Receipt Date: 20180927
  Transmission Date: 20181010
  Serious: Yes (Other)
  Sender: FDA-Public Use
  Company Number: PHHY2018AR070969

PATIENT
  Sex: Female

DRUGS (4)
  1. SYSTANE GELDROPS [Suspect]
     Active Substance: POLYETHYLENE GLYCOL 400\PROPYLENE GLYCOL
     Indication: DRY EYE
     Dosage: 1 GTT, Q2H
     Route: 047
     Dates: end: 2017
  2. SYSTANE GELDROPS [Suspect]
     Active Substance: POLYETHYLENE GLYCOL 400\PROPYLENE GLYCOL
     Dosage: (ONE DROP ON EACH EYE EVERY 2 HOURS, AND BEFORE SLEEPING 2 DROPS ON EACH EYE)
     Route: 047
     Dates: end: 201804
  3. CALCIMAX [Concomitant]
     Active Substance: CALCIUM CARBONATE\CHOLECALCIFEROL
     Indication: PRODUCT USED FOR UNKNOWN INDICATION
     Route: 065
  4. LEUCOVORIN CALCIUM. [Concomitant]
     Active Substance: LEUCOVORIN CALCIUM
     Indication: PRODUCT USED FOR UNKNOWN INDICATION
     Route: 065

REACTIONS (6)
  - Eye infection [Recovered/Resolved]
  - Eye discharge [Not Recovered/Not Resolved]
  - Medication residue present [Unknown]
  - Ulcerative keratitis [Recovered/Resolved]
  - Ulcerative keratitis [Recovering/Resolving]
  - Feeling of despair [Unknown]

NARRATIVE: CASE EVENT DATE: 2017
